FAERS Safety Report 15131382 (Version 1)
Quarter: 2018Q3

REPORT INFORMATION
  Report Type: Spontaneous
  Country: NL (occurrence: NL)
  Receive Date: 20180711
  Receipt Date: 20180711
  Transmission Date: 20181010
  Serious: Yes (Other)
  Sender: FDA-Public Use
  Company Number: NL-MYLANLABS-2018M1049009

PATIENT
  Age: 73 Year
  Sex: Male
  Weight: 67 kg

DRUGS (9)
  1. TAVEGYL [Concomitant]
     Active Substance: CLEMASTINE FUMARATE
     Indication: PRODUCT USED FOR UNKNOWN INDICATION
     Dosage: 1DD1
     Dates: start: 20170119
  2. METAMUCIL [Concomitant]
     Active Substance: PLANTAGO SEED
     Indication: PRODUCT USED FOR UNKNOWN INDICATION
     Dosage: UNK
  3. TRANXENE [Concomitant]
     Active Substance: CLORAZEPATE DIPOTASSIUM
     Indication: PRODUCT USED FOR UNKNOWN INDICATION
     Dosage: 2?3XPER WEEK
  4. OMEPRAZOL                          /00661201/ [Concomitant]
     Active Substance: OMEPRAZOLE
     Indication: PRODUCT USED FOR UNKNOWN INDICATION
     Dosage: 2DD1
     Dates: start: 20140910
  5. SIMVASTIN [Concomitant]
     Active Substance: SIMVASTATIN
     Indication: PRODUCT USED FOR UNKNOWN INDICATION
     Dosage: 1DD1
     Dates: start: 20140910
  6. AMITRIPTYLINE [Suspect]
     Active Substance: AMITRIPTYLINE
     Indication: PRODUCT USED FOR UNKNOWN INDICATION
     Dosage: V.A.13/12^17 WEK.OPGEB.PW V.1PD NAAR4PD IVM EXTREME BIJW.V.A.10/1^18 WEK.AFGEB.1 PD NAAR 0 OP 31/1.
  7. XOLAIR [Concomitant]
     Active Substance: OMALIZUMAB
     Indication: PRODUCT USED FOR UNKNOWN INDICATION
     Dosage: 4 INJECTIES PER 4 WEKEN,
     Dates: start: 20160223
  8. LEVOCETIRIZIN [Concomitant]
     Active Substance: LEVOCETIRIZINE DIHYDROCHLORIDE
     Indication: PRODUCT USED FOR UNKNOWN INDICATION
     Dosage: 5 MG, BID, 2DD1
     Dates: start: 20160324
  9. ALVESCO [Concomitant]
     Active Substance: CICLESONIDE
     Indication: PRODUCT USED FOR UNKNOWN INDICATION
     Dosage: 1DD1

REACTIONS (6)
  - Urinary retention [Recovering/Resolving]
  - Dysgeusia [Recovering/Resolving]
  - Constipation [Recovering/Resolving]
  - Tremor [Recovering/Resolving]
  - Confusional state [Recovering/Resolving]
  - Dry mouth [Recovering/Resolving]

NARRATIVE: CASE EVENT DATE: 20171231
